FAERS Safety Report 6028914-X (Version None)
Quarter: 2009Q1

REPORT INFORMATION
  Report Type: 
  Country: None (occurrence: None)
  Receive Date: 20090106
  Receipt Date: 20081226
  Transmission Date: 20090719
  Serious: Yes (Hospitalization)
  Sender: FDA-Public Use
  Company Number: US-CELGENEUS-163-21880-08110520

PATIENT
  Sex: Female
  Weight: 93.4 kg

DRUGS (20)
  1. REVLIMID [Suspect]
     Indication: AMYLOIDOSIS
     Route: 048
     Dates: start: 20081208
  2. REVLIMID [Suspect]
     Route: 048
     Dates: start: 20081013, end: 20081102
  3. DEXAMETHASONE [Suspect]
     Indication: AMYLOIDOSIS
     Route: 048
     Dates: start: 20081013, end: 20081103
  4. MELPHALAN [Suspect]
     Indication: AMYLOIDOSIS
     Route: 048
     Dates: start: 20081013, end: 20081016
  5. ENALAPRIL MALEATE [Concomitant]
     Indication: DRUG USE FOR UNKNOWN INDICATION
     Route: 048
     Dates: start: 20081104
  6. ENALAPRIL MALEATE [Concomitant]
     Route: 048
     Dates: end: 20081104
  7. URSO FORTE [Concomitant]
     Route: 048
  8. COLESTIPOL HYDROCHLORIDE [Concomitant]
     Route: 048
  9. METOPROLOL [Concomitant]
     Indication: HYPERTENSION
     Route: 048
  10. ASPIRIN [Concomitant]
     Indication: DRUG USE FOR UNKNOWN INDICATION
     Route: 048
  11. ASPIRIN [Concomitant]
     Route: 048
  12. VITAMIN B-12 [Concomitant]
     Indication: DRUG USE FOR UNKNOWN INDICATION
     Route: 048
  13. FUROSEMIDE [Concomitant]
     Indication: DRUG USE FOR UNKNOWN INDICATION
     Route: 048
  14. PRILOSEC [Concomitant]
     Route: 048
  15. DIPHENHYDRAMINE HCL [Concomitant]
     Indication: RASH
     Route: 048
  16. DIPHENHYDRAMINE HCL [Concomitant]
  17. ATIVAN [Concomitant]
     Indication: RASH
     Route: 065
  18. ATIVAN [Concomitant]
  19. POTASSIUM CHLORIDE [Concomitant]
     Indication: DRUG USE FOR UNKNOWN INDICATION
     Route: 065
     Dates: end: 20081104
  20. EPOGEN [Concomitant]
     Dosage: 20000 UNITS
     Route: 058

REACTIONS (7)
  - ANOREXIA [None]
  - BLOOD MAGNESIUM DECREASED [None]
  - DEHYDRATION [None]
  - DIARRHOEA [None]
  - HYPOCALCAEMIA [None]
  - HYPOTENSION [None]
  - RENAL FAILURE ACUTE [None]
